FAERS Safety Report 9779895 (Version 4)
Quarter: 2014Q3

REPORT INFORMATION
  Report Type: Report from Study
  Country: US (occurrence: US)
  Receive Date: 20131223
  Receipt Date: 20140710
  Transmission Date: 20150326
  Serious: Yes (Hospitalization, Other)
  Sender: FDA-Public Use
  Company Number: US-ABBVIE-13P-163-1084853-00

PATIENT
  Sex: Female

DRUGS (5)
  1. PAIN MEDICATION [Concomitant]
     Active Substance: UNSPECIFIED INGREDIENT
     Indication: PAIN
  2. CREON [Suspect]
     Active Substance: PANCRELIPASE AMYLASE\PANCRELIPASE LIPASE\PANCRELIPASE PROTEASE
     Indication: PANCREATIC INSUFFICIENCY
  3. ENZYMES NOS [Concomitant]
     Indication: PRODUCT USED FOR UNKNOWN INDICATION
     Dosage: 3 W MEALS AND 2 W SNACKS
  4. CREON [Suspect]
     Active Substance: PANCRELIPASE AMYLASE\PANCRELIPASE LIPASE\PANCRELIPASE PROTEASE
     Indication: PANCREATITIS CHRONIC
  5. INSULIN [Concomitant]
     Active Substance: INSULIN NOS
     Indication: PRODUCT USED FOR UNKNOWN INDICATION

REACTIONS (16)
  - Pancreaticoduodenectomy [Unknown]
  - Malaise [Unknown]
  - Thrombosis in device [Unknown]
  - Procedural haemorrhage [Unknown]
  - Pancreas transplant rejection [Unknown]
  - Pancreatitis [Unknown]
  - Transplantation complication [Unknown]
  - Surgical failure [Unknown]
  - Pancreatitis chronic [Unknown]
  - Sphincter of Oddi dysfunction [Unknown]
  - Drug administration error [Unknown]
  - Frequent bowel movements [Unknown]
  - Psychiatric symptom [Unknown]
  - Drug ineffective [Unknown]
  - Abdominal distension [Unknown]
  - Cholelithiasis [Unknown]

NARRATIVE: CASE EVENT DATE: 1994
